FAERS Safety Report 7321099-9 (Version None)
Quarter: 2011Q1

REPORT INFORMATION
  Report Type: 
  Country: None (occurrence: None)
  Receive Date: 20110228
  Receipt Date: 20110218
  Transmission Date: 20110831
  Serious: Yes (Other)
  Sender: FDA-Public Use
  Company Number: BR-ASTRAZENECA-2011SE09655

PATIENT
  Age: 58 Year
  Sex: Male

DRUGS (3)
  1. METFORMIN [Concomitant]
     Indication: DIABETES MELLITUS
     Route: 048
     Dates: start: 20090101
  2. ATACAND HCT [Suspect]
     Dosage: 8/12.5 MILLIGRAM OD
     Route: 048
     Dates: start: 20090101, end: 20101001
  3. ATACAND HCT [Suspect]
     Indication: HYPERTENSION
     Dosage: 16/12.5 MILLIGRAM OD
     Route: 048
     Dates: start: 20090101

REACTIONS (5)
  - WRONG TECHNIQUE IN DRUG USAGE PROCESS [None]
  - NEPHROLITHIASIS [None]
  - DRUG DOSE OMISSION [None]
  - RENAL COLIC [None]
  - BLOOD PRESSURE INCREASED [None]
